FAERS Safety Report 25045878 (Version 1)
Quarter: 2025Q1

REPORT INFORMATION
  Report Type: Report from Study
  Country: US (occurrence: US)
  Receive Date: 20250306
  Receipt Date: 20250306
  Transmission Date: 20250409
  Serious: Yes (Hospitalization)
  Sender: SERVIER
  Company Number: US-SERVIER-S25002674

PATIENT

DRUGS (1)
  1. TIBSOVO [Suspect]
     Active Substance: IVOSIDENIB
     Indication: Acute myeloid leukaemia
     Dosage: 250 MG, QD
     Route: 048
     Dates: start: 20250108

REACTIONS (7)
  - Swelling [Unknown]
  - Thrombosis [Unknown]
  - Platelet count decreased [Unknown]
  - Cerebral haemorrhage [Unknown]
  - Unevaluable event [Unknown]
  - Depressed mood [Unknown]
  - Underdose [Recovered/Resolved]

NARRATIVE: CASE EVENT DATE: 20250108
